FAERS Safety Report 9736087 (Version 1)
Quarter: 2013Q4

REPORT INFORMATION
  Report Type: Spontaneous
  Country: DE (occurrence: DE)
  Receive Date: 20131206
  Receipt Date: 20131206
  Transmission Date: 20140711
  Serious: Yes (Hospitalization)
  Sender: FDA-Public Use
  Company Number: DE-GLAXOSMITHKLINE-B0948289A

PATIENT
  Age: 72 Year
  Sex: 0
  Weight: 54.5 kg

DRUGS (1)
  1. ACYCLOVIR [Suspect]
     Indication: HERPES ZOSTER
     Dosage: 800MG FIVE TIMES PER DAY
     Route: 048

REACTIONS (6)
  - Renal failure acute [Recovering/Resolving]
  - Crystal nephropathy [Unknown]
  - Nephropathy [Unknown]
  - Mucosal dryness [Unknown]
  - Blister [Unknown]
  - Incorrect dose administered [Unknown]
